FAERS Safety Report 8557745-1 (Version None)
Quarter: 2012Q3

REPORT INFORMATION
  Report Type: 
  Country: None (occurrence: None)
  Receive Date: 20120801
  Receipt Date: 20120726
  Transmission Date: 20120928
  Serious: Yes (Other)
  Sender: FDA-Public Use
  Company Number: FR-PFIZER INC-2012182030

PATIENT
  Age: 84 Year
  Sex: Female

DRUGS (6)
  1. CORTISONE [Concomitant]
     Dosage: 2 MG, UNK
  2. IRBESARTAN [Concomitant]
     Dosage: UNK
  3. METFORMIN HCL [Concomitant]
     Dosage: UNK
  4. ATORVASTATIN [Suspect]
     Dosage: 10 MG, DAILY
     Dates: start: 20120615
  5. INSULIN [Concomitant]
     Dosage: UNK
  6. RYTHMOL [Concomitant]
     Dosage: UNK

REACTIONS (7)
  - PAIN IN EXTREMITY [None]
  - WEIGHT DECREASED [None]
  - ALANINE AMINOTRANSFERASE INCREASED [None]
  - DECREASED APPETITE [None]
  - VISUAL ACUITY REDUCED [None]
  - ASPARTATE AMINOTRANSFERASE INCREASED [None]
  - GAMMA-GLUTAMYLTRANSFERASE INCREASED [None]
